FAERS Safety Report 9997619 (Version 1)
Quarter: 2014Q1

REPORT INFORMATION
  Report Type: Spontaneous
  Country: US (occurrence: US)
  Receive Date: 20140311
  Receipt Date: 20140311
  Transmission Date: 20141002
  Serious: No
  Sender: FDA-Public Use
  Company Number: US-B.I. PHARMACEUTICALS,INC./RIDGEFIELD-2014-BI-09306BP

PATIENT
  Sex: Male
  Weight: 77 kg

DRUGS (3)
  1. COMBIVENT [Suspect]
     Indication: CHRONIC OBSTRUCTIVE PULMONARY DISEASE
     Dosage: STRENGTH: 18 MCG / 103 MCG
     Route: 055
     Dates: start: 2002, end: 201307
  2. MUSINEX [Concomitant]
     Route: 048
  3. QBAR [Concomitant]
     Route: 048

REACTIONS (2)
  - Lung disorder [Unknown]
  - Overdose [Not Recovered/Not Resolved]
